FAERS Safety Report 8226412-6 (Version None)
Quarter: 2012Q1

REPORT INFORMATION
  Report Type: 
  Country: None (occurrence: None)
  Receive Date: 20120321
  Receipt Date: 20120313
  Transmission Date: 20120608
  Serious: Yes (Other)
  Sender: FDA-Public Use
  Company Number: CA-ASTRAZENECA-2012SE17108

PATIENT
  Age: 41 Year
  Sex: Male

DRUGS (2)
  1. VIMOVO [Suspect]
     Indication: BACK PAIN
     Dosage: 500/20 MG BID
     Route: 048
     Dates: start: 20110701, end: 20111128
  2. CODEINE COMBIN [Concomitant]
     Indication: BACK PAIN

REACTIONS (4)
  - GASTROINTESTINAL DISORDER [None]
  - ABDOMINAL PAIN UPPER [None]
  - HAEMATEMESIS [None]
  - DYSPEPSIA [None]
